FAERS Safety Report 11169592 (Version 1)
Quarter: 2015Q2

REPORT INFORMATION
  Report Type: Spontaneous
  Country: US (occurrence: US)
  Receive Date: 20150605
  Receipt Date: 20150605
  Transmission Date: 20150821
  Serious: No
  Sender: FDA-Public Use
  Company Number: US-BIOMARINAP-US-2014-104500

PATIENT
  Sex: Female
  Weight: 75 kg

DRUGS (1)
  1. NAGLAZYME [Suspect]
     Active Substance: GALSULFASE
     Indication: MUCOPOLYSACCHARIDOSIS VI
     Dosage: 75 MG, QW
     Route: 042
     Dates: start: 20050713

REACTIONS (2)
  - Infection [Not Recovered/Not Resolved]
  - Knee operation [Not Recovered/Not Resolved]
